FAERS Safety Report 6012760-7 (Version None)
Quarter: 2008Q4

REPORT INFORMATION
  Report Type: 
  Country: None (occurrence: None)
  Receive Date: 20081217
  Receipt Date: 20060803
  Transmission Date: 20090506
  Serious: Yes (Death, Life-Threatening, Hospitalization, Disabling, Other)
  Sender: FDA-Public Use
  Company Number: 2006US001605

PATIENT
  Age: 74 Year
  Sex: Female
  Weight: 78.5 kg

DRUGS (2)
  1. AMEVIVE [Suspect]
     Indication: PSORIASIS
     Dosage: 15 MG, WEEKLY; INTRAMUSCULAR
     Route: 030
     Dates: start: 20040407, end: 20041201
  2. METHOTREXATE [Concomitant]

REACTIONS (5)
  - AORTIC ANEURYSM [None]
  - CHRONIC OBSTRUCTIVE PULMONARY DISEASE [None]
  - PNEUMONIA [None]
  - STAPHYLOCOCCAL INFECTION [None]
  - URINARY TRACT INFECTION [None]
